FAERS Safety Report 6042882-6 (Version None)
Quarter: 2009Q1

REPORT INFORMATION
  Report Type: 
  Country: None (occurrence: None)
  Receive Date: 20090119
  Receipt Date: 20090109
  Transmission Date: 20090719
  Serious: Yes (Hospitalization)
  Sender: FDA-Public Use
  Company Number: A0690187A

PATIENT
  Age: 49 Year
  Sex: Female
  Weight: 91.8 kg

DRUGS (7)
  1. AVANDIA [Suspect]
     Dosage: 4MG TWICE PER DAY
     Route: 048
     Dates: start: 20050204, end: 20070201
  2. AVANDAMET [Suspect]
     Route: 048
     Dates: start: 20041120, end: 20050204
  3. GLUCOPHAGE [Concomitant]
  4. METFORMIN [Concomitant]
  5. DIABETA [Concomitant]
  6. GLUCOTROL [Concomitant]
  7. ALBUTEROL [Concomitant]

REACTIONS (3)
  - INJURY [None]
  - MYOCARDIAL INFARCTION [None]
  - PAIN [None]
